FAERS Safety Report 5966759-7 (Version None)
Quarter: 2008Q4

REPORT INFORMATION
  Report Type: 
  Country: None (occurrence: None)
  Receive Date: 20081119
  Receipt Date: 20080818
  Transmission Date: 20090506
  Serious: No
  Sender: FDA-Public Use
  Company Number: WAES 0808USA03673

PATIENT
  Age: 61 Year
  Sex: Male

DRUGS (7)
  1. JANUVIA [Suspect]
     Indication: TYPE 2 DIABETES MELLITUS
     Dosage: 100 MG/DAILY/PO
     Route: 048
     Dates: end: 20080817
  2. DIOVAN [Concomitant]
  3. GLUCOPHAGE [Concomitant]
  4. ASPIRIN [Concomitant]
  5. GLIPIZIDE [Concomitant]
  6. LOVASTATIN [Concomitant]
  7. METOPROLOL TARTRATE [Concomitant]

REACTIONS (1)
  - HEADACHE [None]
